FAERS Safety Report 5530464-1 (Version None)
Quarter: 2007Q4

REPORT INFORMATION
  Report Type: 
  Country: None (occurrence: None)
  Receive Date: 20071130
  Receipt Date: 20071129
  Transmission Date: 20080405
  Serious: Yes (Other)
  Sender: FDA-Public Use
  Company Number: CA-BRISTOL-MYERS SQUIBB COMPANY-13979059

PATIENT
  Age: 39 Year
  Sex: Male

DRUGS (8)
  1. DIDANOSINE [Suspect]
     Indication: HIV INFECTION
     Dates: start: 20020101
  2. STAVUDINE [Interacting]
     Indication: HIV INFECTION
     Dates: start: 20020101
  3. TETRACYCLINE [Interacting]
     Indication: ACNE
     Dates: start: 20021101, end: 20021118
  4. NEVIRAPINE [Interacting]
     Indication: HIV INFECTION
     Dates: start: 20020101
  5. LOPINAVIR AND RITONAVIR [Interacting]
     Indication: HIV INFECTION
     Dates: start: 20020101
  6. TENOFOVIR DISOPROXIL FUMARATE [Interacting]
     Indication: HIV INFECTION
     Dates: start: 20020101
  7. MINOCYCLINE HCL [Interacting]
     Indication: ACNE
     Dates: start: 20010307, end: 20020902
  8. MAGNESIUM HYDROX+ALUMINUM HYDR [Concomitant]

REACTIONS (2)
  - DRUG INTERACTION [None]
  - HYPERTRIGLYCERIDAEMIA [None]
